FAERS Safety Report 7575338-X (Version None)
Quarter: 2011Q2

REPORT INFORMATION
  Report Type: 
  Country: None (occurrence: None)
  Receive Date: 20110627
  Receipt Date: 20110617
  Transmission Date: 20111010
  Serious: Yes (Hospitalization, Other)
  Sender: FDA-Public Use
  Company Number: US-ASTRAZENECA-2011SE21854

PATIENT
  Age: 84 Year
  Sex: Female

DRUGS (1)
  1. NEXIUM [Suspect]
     Route: 048

REACTIONS (6)
  - PALPITATIONS [None]
  - FATIGUE [None]
  - ROTATOR CUFF REPAIR [None]
  - CARDIAC PACEMAKER INSERTION [None]
  - DIZZINESS [None]
  - MALAISE [None]
